FAERS Safety Report 12518226 (Version 1)
Quarter: 2016Q2

REPORT INFORMATION
  Report Type: Spontaneous
  Country: US (occurrence: US)
  Receive Date: 20160630
  Receipt Date: 20160630
  Transmission Date: 20160815
  Serious: No
  Sender: FDA-Public Use
  Company Number: US-TEVA-671576USA

PATIENT
  Sex: Male
  Weight: 77.18 kg

DRUGS (3)
  1. CARBIDOPA W/LEVODOPA [Concomitant]
     Active Substance: CARBIDOPA\LEVODOPA
     Indication: PARKINSON^S DISEASE
  2. AZILECT [Suspect]
     Active Substance: RASAGILINE MESYLATE
     Indication: PARKINSON^S DISEASE
     Dates: start: 2015
  3. UBIQUINOL [Concomitant]
     Active Substance: UBIQUINOL
     Indication: PARKINSON^S DISEASE

REACTIONS (12)
  - Eye irritation [Not Recovered/Not Resolved]
  - Feeling abnormal [Recovered/Resolved]
  - Musculoskeletal stiffness [Recovered/Resolved]
  - Eye pain [Not Recovered/Not Resolved]
  - Malaise [Recovered/Resolved]
  - Dry eye [Not Recovered/Not Resolved]
  - Ocular hyperaemia [Not Recovered/Not Resolved]
  - Vitamin D decreased [Unknown]
  - Adverse food reaction [Recovered/Resolved]
  - Headache [Recovered/Resolved]
  - Heart rate increased [Recovered/Resolved]
  - Eye discharge [Not Recovered/Not Resolved]
